FAERS Safety Report 21770277 (Version 1)
Quarter: 2022Q4

REPORT INFORMATION
  Report Type: Spontaneous
  Country: DE (occurrence: DE)
  Receive Date: 20221223
  Receipt Date: 20221223
  Transmission Date: 20230112
  Serious: Yes (Other)
  Sender: FDA-Public Use
  Company Number: None

PATIENT
  Sex: Female

DRUGS (1)
  1. NIFEDIPINE [Suspect]
     Active Substance: NIFEDIPINE
     Indication: Product used for unknown indication
     Dosage: IF NECESSARY, APPROX. EVERY 4 WEEKS, NIFEDIPINE RATIOPHARM 20 MG/ML DROPS, THERAPY END DATE : NASK,
     Dates: start: 20220907

REACTIONS (2)
  - Hypertensive crisis [Unknown]
  - Liquid product physical issue [Unknown]
